FAERS Safety Report 4541221-7 (Version None)
Quarter: 2004Q4

REPORT INFORMATION
  Report Type: 
  Country: None (occurrence: None)
  Receive Date: 20041227
  Receipt Date: 20041209
  Transmission Date: 20050328
  Serious: Yes (Life-Threatening, Other)
  Sender: FDA-Public Use
  Company Number: 2004-DE-06154GD(0)

PATIENT
  Age: 19 Year
  Sex: Female

DRUGS (3)
  1. ORCIPRENALINE (ORCIPRENALINE SULFATE) [Suspect]
     Indication: DYSPNOEA
  2. MARCAINE [Suspect]
     Dosage: 0.25% INJECTION (SEE TEXT), DB
  3. VASOPRESSIN (VASOPRESSIN AND ANALOGUES) [Suspect]
     Dosage: 2 U, DB

REACTIONS (5)
  - ANAPHYLACTIC REACTION [None]
  - CARDIAC ARREST [None]
  - DRUG INEFFECTIVE [None]
  - RESPIRATORY ARREST [None]
  - RESPIRATORY DISTRESS [None]
